FAERS Safety Report 9603824 (Version 1)
Quarter: 2013Q4

REPORT INFORMATION
  Report Type: Report from Study
  Country: BR (occurrence: BR)
  Receive Date: 20131008
  Receipt Date: 20131008
  Transmission Date: 20140711
  Serious: Yes (Hospitalization, Other)
  Sender: FDA-Public Use
  Company Number: BR-ROCHE-1285611

PATIENT
  Sex: Female
  Weight: 90 kg

DRUGS (2)
  1. XOLAIR [Suspect]
     Indication: ASTHMA
     Route: 065
     Dates: start: 20130923
  2. VANNAIR [Concomitant]

REACTIONS (2)
  - Pneumonia [Recovering/Resolving]
  - Asthma [Recovering/Resolving]
